FAERS Safety Report 4686089-3 (Version None)
Quarter: 2005Q2

REPORT INFORMATION
  Report Type: 
  Country: None (occurrence: None)
  Receive Date: 20050609
  Receipt Date: 19940906
  Transmission Date: 20051028
  Serious: Yes (Hospitalization)
  Sender: FDA-Public Use
  Company Number: 199403949HAG

PATIENT
  Age: 72 Year
  Sex: Female

DRUGS (8)
  1. FRUSEMIDE [Suspect]
     Indication: ESSENTIAL HYPERTENSION
     Dates: start: 19931223
  2. SEPTRA [Suspect]
     Indication: URINARY TRACT DISORDER
     Dosage: DOSE: 2 DF
     Dates: start: 19931227, end: 19931229
  3. WARFARIN SODIUM [Suspect]
     Indication: CARDIAC DISORDER
     Dates: start: 19931217, end: 19931229
  4. AMIODARONE HYDROCHLORIDE [Suspect]
     Indication: CARDIAC DISORDER
     Dates: start: 19931217
  5. ALLOPURINOL [Suspect]
     Dates: start: 19931223
  6. CALTRATE [Suspect]
     Dosage: DOSE: 3 DF
     Dates: start: 19931223
  7. RANITIDINE [Suspect]
     Indication: PROPHYLAXIS
     Dates: start: 19931223
  8. COLOXYL [Suspect]
     Indication: CONSTIPATION
     Dates: start: 19931223

REACTIONS (2)
  - HAEMODIALYSIS [None]
  - RENAL FAILURE ACUTE [None]
